FAERS Safety Report 12605586 (Version 1)
Quarter: 2016Q3

REPORT INFORMATION
  Report Type: Report from Study
  Country: FR (occurrence: FR)
  Receive Date: 20160729
  Receipt Date: 20160729
  Transmission Date: 20161109
  Serious: Yes (Hospitalization)
  Sender: FDA-Public Use
  Company Number: FR-ROCHE-1803217

PATIENT
  Sex: Male
  Weight: 57 kg

DRUGS (7)
  1. PEMETREXED [Suspect]
     Active Substance: PEMETREXED
     Indication: NON-SMALL CELL LUNG CANCER
     Dosage: MOST RECENT DOSE OF PEMETREXED 950 MG (CUMULATIVE DOSE: 2900 MG) ON 06/JUN/2016
     Route: 042
     Dates: start: 20160425
  2. CISPLATINE [Suspect]
     Active Substance: CISPLATIN
     Indication: METASTASES TO CENTRAL NERVOUS SYSTEM
  3. BEVACIZUMAB [Suspect]
     Active Substance: BEVACIZUMAB
     Indication: NON-SMALL CELL LUNG CANCER
     Dosage: MOST RECENT DOSE OF BEVACIZUMAB 500 MG (CUMULATIVE DOSE: 1025 MG) ON 06/JUN/2016 (CYCLE 3)
     Route: 042
     Dates: start: 20160517
  4. PEMETREXED [Suspect]
     Active Substance: PEMETREXED
     Indication: METASTASES TO CENTRAL NERVOUS SYSTEM
  5. CISPLATINE [Suspect]
     Active Substance: CISPLATIN
     Indication: NON-SMALL CELL LUNG CANCER
     Dosage: MOST RECENT DOSE OF CISPLATIN 143 MG (CUMULATIVE DOSE: 437 MG) ON 06/JUN/2016
     Route: 042
     Dates: start: 20160425
  6. BEVACIZUMAB [Suspect]
     Active Substance: BEVACIZUMAB
     Indication: METASTASES TO CENTRAL NERVOUS SYSTEM
  7. INNOHEP [Concomitant]
     Active Substance: TINZAPARIN SODIUM
     Indication: PULMONARY EMBOLISM
     Route: 058
     Dates: start: 20160518

REACTIONS (1)
  - General physical health deterioration [Not Recovered/Not Resolved]

NARRATIVE: CASE EVENT DATE: 20160628
